FAERS Safety Report 16556535 (Version 2)
Quarter: 2019Q3

REPORT INFORMATION
  Report Type: Spontaneous
  Country: DE (occurrence: DE)
  Receive Date: 20190711
  Receipt Date: 20190826
  Transmission Date: 20191004
  Serious: Yes (Death)
  Sender: FDA-Public Use
  Company Number: DE-SYNEX-T201904911

PATIENT
  Sex: Male

DRUGS (1)
  1. INOMAX [Suspect]
     Active Substance: NITRIC OXIDE
     Indication: CANDIDA PNEUMONIA
     Dosage: UNK
     Route: 055
     Dates: start: 20190620

REACTIONS (3)
  - Device malfunction [Unknown]
  - Hypoventilation neonatal [Fatal]
  - Product use issue [Unknown]

NARRATIVE: CASE EVENT DATE: 20190619
